FAERS Safety Report 8823861 (Version 1)
Quarter: 2012Q4

REPORT INFORMATION
  Report Type: 
  Country: US (occurrence: US)
  Receive Date: 20121003
  Receipt Date: 20121003
  Transmission Date: 20130627
  Serious: Yes (Other)
  Sender: FDA-Public Use
  Company Number: US-009507513-1210USA000559

PATIENT
  Age: 55 Year
  Sex: Female

DRUGS (23)
  1. JANUMET [Suspect]
     Dosage: 50/500, qd
  2. CARAFATE [Suspect]
     Dosage: 1 g, qd
     Route: 048
  3. LOZOL [Suspect]
     Dosage: 1.25 mg, qd
     Route: 048
  4. ZYRTEC [Suspect]
     Dosage: 10 mg, qd
  5. GABAPENTIN [Suspect]
  6. VICODIN [Suspect]
     Dosage: 7.5mg/325mg, q4h
  7. ZANAFLEX [Suspect]
     Dosage: 2 mg, bid
  8. VALSARTAN [Suspect]
     Dosage: 160 mg, qd
  9. BUPROPION HYDROCHLORIDE [Suspect]
     Dosage: 300 mg, qd
  10. METFORMIN [Suspect]
     Dosage: 500 mg, qd
  11. KLONOPIN [Suspect]
     Dosage: 0.5 mg, bid
  12. PRILOSEC [Suspect]
  13. AGGRENOX [Suspect]
  14. FLONASE [Suspect]
     Dosage: 50 Microgram, UNK
     Route: 045
  15. FLOVENT [Suspect]
     Dosage: 220 Microgram, bid
  16. VENTOLIN (ALBUTEROL) [Suspect]
  17. IMITREX (SUMATRIPTAN) [Suspect]
     Dosage: 100 mg, prn
  18. NITROLINGUAL [Suspect]
     Dosage: 0.4 mg, prn
  19. EPIPEN [Suspect]
     Route: 062
  20. LORTAB [Suspect]
     Route: 048
  21. ZOCOR [Suspect]
  22. VITAMINS (UNSPECIFIED) [Suspect]
  23. FLEXERIL [Concomitant]

REACTIONS (3)
  - Memory impairment [Unknown]
  - Feeling abnormal [Unknown]
  - Condition aggravated [Unknown]
